FAERS Safety Report 16760479 (Version 3)
Quarter: 2022Q2

REPORT INFORMATION
  Report Type: Spontaneous
  Country: US (occurrence: None)
  Receive Date: 20190830
  Receipt Date: 20220613
  Transmission Date: 20220721
  Serious: Yes (Hospitalization)
  Sender: FDA-Public Use
  Company Number: US-ROCHE-2384223

PATIENT
  Age: 62 Year
  Sex: Female
  Weight: 54.026 kg

DRUGS (5)
  1. OCREVUS [Suspect]
     Active Substance: OCRELIZUMAB
     Indication: Relapsing-remitting multiple sclerosis
     Dosage: ONGOING: YES, PATIENT GETS THE ^FULL-DOSE^
     Route: 042
     Dates: start: 201804
  2. VALIUM [Suspect]
     Active Substance: DIAZEPAM
     Indication: Anxiety
     Route: 048
     Dates: start: 20170101
  3. GABAPENTIN [Concomitant]
     Active Substance: GABAPENTIN
     Dosage: ONGOING:NO
     Route: 048
     Dates: start: 201804, end: 201908
  4. GABAPENTIN [Concomitant]
     Active Substance: GABAPENTIN
     Dosage: 1 PILL IN THE MORNING AND TWO PILLS LATER IN DAY ;ONGOING: YES
     Route: 048
     Dates: start: 201908
  5. SEROQUEL [Concomitant]
     Active Substance: QUETIAPINE FUMARATE
     Indication: Depression
     Dosage: TAKES AT NIGHT ;ONGOING: YES
     Route: 048
     Dates: start: 2017

REACTIONS (8)
  - Multiple sclerosis relapse [Recovered/Resolved]
  - Pain [Not Recovered/Not Resolved]
  - Sensory disturbance [Not Recovered/Not Resolved]
  - Hypoaesthesia [Not Recovered/Not Resolved]
  - Muscular weakness [Not Recovered/Not Resolved]
  - Asthenia [Not Recovered/Not Resolved]
  - Feeling abnormal [Not Recovered/Not Resolved]
  - Headache [Not Recovered/Not Resolved]

NARRATIVE: CASE EVENT DATE: 20190401
